FAERS Safety Report 21549719 (Version 1)
Quarter: 2022Q4

REPORT INFORMATION
  Report Type: Spontaneous
  Country: US (occurrence: US)
  Receive Date: 20221103
  Receipt Date: 20221103
  Transmission Date: 20230112
  Serious: No
  Sender: FDA-Public Use
  Company Number: US-GSKCCFUS-Case-01538008_AE-87133

PATIENT
  Age: 86 Year
  Sex: Female

DRUGS (1)
  1. TRELEGY ELLIPTA [Suspect]
     Active Substance: FLUTICASONE FUROATE\UMECLIDINIUM BROMIDE\VILANTEROL TRIFENATATE
     Indication: Product used for unknown indication
     Dosage: 1 PUFF(S), QD (200/62.5/25 MCG)
     Route: 055
     Dates: start: 20221020, end: 20221021

REACTIONS (3)
  - Nervousness [Recovered/Resolved]
  - Rhinorrhoea [Recovered/Resolved]
  - Ageusia [Recovered/Resolved]
